FAERS Safety Report 6980625-X (Version None)
Quarter: 2010Q3

REPORT INFORMATION
  Report Type: 
  Country: None (occurrence: None)
  Receive Date: 20100914
  Receipt Date: 20100902
  Transmission Date: 20110219
  Serious: Yes (Other)
  Sender: FDA-Public Use
  Company Number: US-SANOFI-AVENTIS-2010SA033185

PATIENT
  Age: 85 Year
  Sex: Male

DRUGS (5)
  1. MULTAQ [Suspect]
     Route: 048
     Dates: start: 20100601
  2. BETA BLOCKING AGENTS [Suspect]
     Route: 065
  3. POLYETHYLENE GLYCOL [Concomitant]
  4. CRESTOR [Concomitant]
  5. PACERONE [Concomitant]

REACTIONS (7)
  - DIARRHOEA [None]
  - DIZZINESS POSTURAL [None]
  - FALL [None]
  - FATIGUE [None]
  - HUMERUS FRACTURE [None]
  - JOINT SWELLING [None]
  - WEIGHT INCREASED [None]
